FAERS Safety Report 20789050 (Version 1)
Quarter: 2022Q2

REPORT INFORMATION
  Report Type: Spontaneous
  Country: US (occurrence: US)
  Receive Date: 20220505
  Receipt Date: 20220505
  Transmission Date: 20220720
  Serious: No
  Sender: FDA-Public Use
  Company Number: US-TAKEDA-2022TUS030067

PATIENT
  Age: 43 Year
  Sex: Female

DRUGS (2)
  1. ENTYVIO [Suspect]
     Active Substance: VEDOLIZUMAB
     Indication: Crohn^s disease
     Dosage: 300 MILLIGRAM
     Route: 042
  2. REMICADE [Concomitant]
     Active Substance: INFLIXIMAB
     Dosage: UNK

REACTIONS (2)
  - Rash [Unknown]
  - Headache [Unknown]
